FAERS Safety Report 6724427-8 (Version None)
Quarter: 2010Q2

REPORT INFORMATION
  Report Type: 
  Country: None (occurrence: None)
  Receive Date: 20100513
  Receipt Date: 20100507
  Transmission Date: 20101027
  Serious: Yes (Disabling)
  Sender: FDA-Public Use
  Company Number: US-MYLANLABS-2009S1021886

PATIENT
  Sex: Male
  Weight: 78.02 kg

DRUGS (5)
  1. DILANTIN [Suspect]
     Indication: CONVULSION
     Route: 048
     Dates: start: 19780101, end: 19930101
  2. DILANTIN [Suspect]
     Route: 048
     Dates: start: 19780101, end: 19930101
  3. PHENYTOIN SODIUM [Suspect]
     Indication: CONVULSION
     Dosage: 300MG ALT WITH 400MG QOD
     Route: 048
     Dates: start: 19930101, end: 20080201
  4. PHENYTOIN SODIUM [Suspect]
     Dosage: 300MG ALT WITH 400MG QOD
     Route: 048
     Dates: start: 19930101, end: 20080201
  5. ATENOLOL [Concomitant]
     Indication: BLOOD PRESSURE INCREASED
     Route: 048

REACTIONS (13)
  - ATAXIA [None]
  - CONFUSIONAL STATE [None]
  - COORDINATION ABNORMAL [None]
  - DIZZINESS [None]
  - DYSARTHRIA [None]
  - ERECTILE DYSFUNCTION [None]
  - HEADACHE [None]
  - INCORRECT DRUG ADMINISTRATION DURATION [None]
  - INSOMNIA [None]
  - MUSCLE TWITCHING [None]
  - NERVOUSNESS [None]
  - NEUROGENIC BLADDER [None]
  - NYSTAGMUS [None]
